FAERS Safety Report 7760863-9 (Version None)
Quarter: 2011Q3

REPORT INFORMATION
  Report Type: 
  Country: None (occurrence: None)
  Receive Date: 20110919
  Receipt Date: 20110912
  Transmission Date: 20111222
  Serious: Yes (Hospitalization)
  Sender: FDA-Public Use
  Company Number: NL-PFIZER INC-2011215617

PATIENT
  Age: 60 Year
  Sex: Female
  Weight: 72 kg

DRUGS (5)
  1. TRAMADOL HYDROCHLORIDE AND ACETAMINOPHEN [Suspect]
     Indication: PAIN
  2. SILDENAFIL [Concomitant]
     Dosage: 40 MG, 3X/DAY
     Route: 048
     Dates: start: 20090921
  3. AZATHIOPRINE [Concomitant]
     Dosage: 150 MG, UNK
     Route: 048
     Dates: start: 20100621
  4. CELEBREX [Suspect]
     Indication: PAIN
  5. UT-15C SR [Concomitant]
     Indication: PULMONARY ARTERIAL HYPERTENSION
     Dosage: 19 MG, 2X/DAY
     Route: 048
     Dates: start: 20110808

REACTIONS (1)
  - DEHYDRATION [None]
